FAERS Safety Report 11445715 (Version 3)
Quarter: 2016Q2

REPORT INFORMATION
  Report Type: Spontaneous
  Country: US (occurrence: US)
  Receive Date: 20150902
  Receipt Date: 20160512
  Transmission Date: 20160815
  Serious: Yes (Other)
  Sender: FDA-Public Use
  Company Number: US-AMGEN-USASP2015088511

PATIENT
  Age: 90 Year
  Sex: Female
  Weight: 41.72 kg

DRUGS (7)
  1. PROLIA [Suspect]
     Active Substance: DENOSUMAB
     Indication: OSTEOPOROSIS
     Dosage: 60 MG, ONE TIME
     Route: 058
     Dates: start: 20150604
  2. LEVOTHYROXINE. [Concomitant]
     Active Substance: LEVOTHYROXINE
     Indication: HYPOTHYROIDISM
     Dosage: 75 MG, QD
     Route: 048
     Dates: start: 2014
  3. CALCIUM VIT D [Concomitant]
     Indication: OSTEOPOROSIS
     Dosage: UNK UNK, QD
     Route: 048
     Dates: start: 2014
  4. LISINOPRIL. [Concomitant]
     Active Substance: LISINOPRIL
     Indication: NEPHRITIS
  5. VITAMIN D                          /00107901/ [Concomitant]
     Active Substance: ERGOCALCIFEROL
     Indication: OSTEOPOROSIS
     Dosage: 1000 IU, QD
     Route: 048
     Dates: start: 2014
  6. ACETYLSALICYLIC ACID [Concomitant]
     Active Substance: ASPIRIN
     Indication: PROPHYLAXIS
     Dosage: 81 MG, QD
     Route: 048
     Dates: start: 2014
  7. LISINOPRIL. [Concomitant]
     Active Substance: LISINOPRIL
     Indication: NEPHROPATHY TOXIC
     Dosage: 20 MG, QD
     Route: 048
     Dates: start: 2014

REACTIONS (15)
  - Pain in extremity [Unknown]
  - Vascular dementia [Unknown]
  - Memory impairment [Recovering/Resolving]
  - Pruritus [Unknown]
  - Back pain [Unknown]
  - Asthenia [Unknown]
  - Cervical vertebral fracture [Unknown]
  - Cerebral atrophy [Unknown]
  - Skin discolouration [Unknown]
  - Blood sodium decreased [Unknown]
  - Dementia [Unknown]
  - Confusional state [Unknown]
  - Dizziness [Unknown]
  - Mental disorder [Unknown]
  - Peripheral coldness [Unknown]

NARRATIVE: CASE EVENT DATE: 2015
